FAERS Safety Report 6907220-2 (Version None)
Quarter: 2010Q3

REPORT INFORMATION
  Report Type: 
  Country: None (occurrence: None)
  Receive Date: 20100804
  Receipt Date: 20100728
  Transmission Date: 20110219
  Serious: Yes (Other)
  Sender: FDA-Public Use
  Company Number: US-GENENTECH-304169

PATIENT
  Sex: Male
  Weight: 83.628 kg

DRUGS (2)
  1. NUTROPIN AQ [Suspect]
     Indication: GROWTH HORMONE DEFICIENCY
     Dosage: 0.6 UNK, 7/WEEK
     Route: 058
     Dates: start: 20061118
  2. NUTROPIN AQ [Suspect]
     Indication: DWARFISM

REACTIONS (1)
  - BLINDNESS [None]
